FAERS Safety Report 9831229 (Version 2)
Quarter: 2014Q1

REPORT INFORMATION
  Report Type: Spontaneous
  Country: US (occurrence: US)
  Receive Date: 20140121
  Receipt Date: 20140206
  Transmission Date: 20141002
  Serious: Yes (Other)
  Sender: FDA-Public Use
  Company Number: US-BIOGENIDEC-2014BI004636

PATIENT
  Age: 22 Year
  Sex: Female

DRUGS (4)
  1. TYSABRI [Suspect]
     Indication: MULTIPLE SCLEROSIS
     Route: 042
     Dates: start: 20131120
  2. NORTRIPTYLINE HCL [Concomitant]
     Route: 048
     Dates: start: 20131218, end: 20140107
  3. PINDOLOL [Concomitant]
     Route: 048
  4. PROZAC [Concomitant]
     Route: 048

REACTIONS (2)
  - Epilepsy [Recovered/Resolved]
  - Nuclear magnetic resonance imaging abnormal [Not Recovered/Not Resolved]
